FAERS Safety Report 7157321-1 (Version None)
Quarter: 2010Q4

REPORT INFORMATION
  Report Type: 
  Country: None (occurrence: None)
  Receive Date: 20101214
  Receipt Date: 20101119
  Transmission Date: 20110411
  Serious: No
  Sender: FDA-Public Use
  Company Number: US-PFIZER INC-US-WYE-H18211210

PATIENT
  Age: 76 Year
  Sex: Female
  Weight: 58.5 kg

DRUGS (4)
  1. ADVIL PM [Suspect]
     Indication: PAIN
     Dosage: 2 DF, 1X/DAY
     Route: 048
     Dates: start: 20101001, end: 20101013
  2. LIPITOR [Concomitant]
  3. CALCIUM [Concomitant]
  4. VITAMINS NOS [Concomitant]

REACTIONS (3)
  - DRUG INEFFECTIVE [None]
  - INFLUENZA [None]
  - MALAISE [None]
